FAERS Safety Report 9432274 (Version 2)
Quarter: 2013Q4

REPORT INFORMATION
  Report Type: Spontaneous
  Country: US (occurrence: None)
  Receive Date: 20130729
  Receipt Date: 20131003
  Transmission Date: 20140711
  Serious: Yes (Hospitalization)
  Sender: FDA-Public Use
  Company Number: NSR_01201_2013

PATIENT
  Age: 50 Year
  Sex: Female

DRUGS (3)
  1. LAMOTRIGINE [Suspect]
     Indication: DEPRESSION
  2. CYCLOBENZAPRINE [Suspect]
     Indication: INFLUENZA LIKE ILLNESS
     Dosage: TOOK 2 DOSES
  3. ESCITALOPRAM [Concomitant]

REACTIONS (5)
  - Drug reaction with eosinophilia and systemic symptoms [None]
  - Drug interaction [None]
  - Drug hypersensitivity [None]
  - Influenza like illness [None]
  - Erythema multiforme [None]
